FAERS Safety Report 5326047-9 (Version None)
Quarter: 2007Q2

REPORT INFORMATION
  Report Type: 
  Country: None (occurrence: None)
  Receive Date: 20070516
  Receipt Date: 20070503
  Transmission Date: 20071010
  Serious: Yes (Hospitalization, Other)
  Sender: FDA-Public Use
  Company Number: DE-JNJFOC-20070503465

PATIENT
  Age: 57 Year
  Sex: Female

DRUGS (2)
  1. HALOPERIDOL DECANOATE [Suspect]
     Indication: PSYCHOTIC DISORDER
     Dosage: ADMINISTERED TWICE, 10 MG TOTAL
  2. OLANZAPINE [Suspect]
     Indication: PSYCHOTIC DISORDER

REACTIONS (2)
  - NEUROLEPTIC MALIGNANT SYNDROME [None]
  - RENAL SALT-WASTING SYNDROME [None]
